FAERS Safety Report 12398443 (Version 2)
Quarter: 2016Q2

REPORT INFORMATION
  Report Type: Spontaneous
  Country: GB (occurrence: GB)
  Receive Date: 20160524
  Receipt Date: 20160531
  Transmission Date: 20160815
  Serious: Yes (Other)
  Sender: FDA-Public Use
  Company Number: GB-PFIZER INC-2016250853

PATIENT
  Sex: Female

DRUGS (5)
  1. DEPO-MEDRONE [Concomitant]
     Active Substance: METHYLPREDNISOLONE
     Dosage: 120 MG, UNK
     Route: 030
  2. LODINE [Concomitant]
     Active Substance: ETODOLAC
     Dosage: 600 MG, 1X/DAY
  3. METHOTREXATE SODIUM. [Suspect]
     Active Substance: METHOTREXATE SODIUM
     Indication: RHEUMATOID ARTHRITIS
     Dosage: 2.5 MG, 2 TABLETS IN FIRST WEEK
  4. METHOTREXATE SODIUM. [Suspect]
     Active Substance: METHOTREXATE SODIUM
     Dosage: 2.5 MG, 5 TABLETS WEEKLY
  5. ACETAMINOPHEN AND CODEINE [Concomitant]
     Active Substance: ACETAMINOPHEN\CODEINE PHOSPHATE
     Indication: PAIN
     Dosage: 2 TABLETS UP TO FOUR TIMES A DAY
     Dates: start: 200503

REACTIONS (2)
  - Liver disorder [Unknown]
  - Drug intolerance [Unknown]
